FAERS Safety Report 15570240 (Version 8)
Quarter: 2021Q4

REPORT INFORMATION
  Report Type: Other
  Country: DE (occurrence: None)
  Receive Date: 20181031
  Receipt Date: 20211109
  Transmission Date: 20220303
  Serious: Yes (Other)
  Sender: FDA-Public Use
  Company Number: DE-ROCHE-2167967

PATIENT
  Age: 36 Year
  Sex: Female
  Weight: 67 kg

DRUGS (10)
  1. OCREVUS [Suspect]
     Active Substance: OCRELIZUMAB
     Indication: Relapsing-remitting multiple sclerosis
     Dosage: SECOND DOSE RECEIVED ON 10/AUG/2018
     Route: 042
     Dates: start: 20180727
  2. OCREVUS [Suspect]
     Active Substance: OCRELIZUMAB
     Route: 042
     Dates: start: 201902
  3. OCREVUS [Suspect]
     Active Substance: OCRELIZUMAB
     Route: 042
     Dates: start: 20190823
  4. OCREVUS [Suspect]
     Active Substance: OCRELIZUMAB
     Route: 042
     Dates: start: 202002
  5. OCREVUS [Suspect]
     Active Substance: OCRELIZUMAB
     Route: 042
     Dates: start: 202008
  6. OCREVUS [Suspect]
     Active Substance: OCRELIZUMAB
     Route: 042
     Dates: start: 20210129
  7. CORTISONE [Suspect]
     Active Substance: CORTISONE
     Indication: Prophylaxis
     Route: 065
  8. COMIRNATY [Suspect]
     Active Substance: TOZINAMERAN
     Indication: COVID-19
     Dosage: RIGHT UPPER ARM
     Route: 065
     Dates: start: 20210601, end: 20210601
  9. COMIRNATY [Suspect]
     Active Substance: TOZINAMERAN
     Dosage: RIGHT UPPER ARM
     Route: 065
     Dates: start: 20210621, end: 20210621
  10. FUROSEMIDE [Concomitant]
     Active Substance: FUROSEMIDE
     Dosage: AS REQUIRED.

REACTIONS (38)
  - Multiple sclerosis relapse [Recovering/Resolving]
  - Fatigue [Recovered/Resolved]
  - Rash [Recovered/Resolved]
  - Weight increased [Recovering/Resolving]
  - Blood pressure increased [Recovered/Resolved]
  - Asthenia [Recovering/Resolving]
  - Tremor [Recovered/Resolved]
  - Dysphagia [Recovered/Resolved]
  - Dysphonia [Recovering/Resolving]
  - Alopecia [Recovered/Resolved]
  - Herpes pharyngitis [Recovered/Resolved]
  - Inflammation [Recovered/Resolved]
  - Toothache [Recovered/Resolved]
  - Influenza [Recovered/Resolved]
  - Gingival bleeding [Recovered/Resolved]
  - Tooth deposit [Recovered/Resolved]
  - Gastritis [Recovered/Resolved]
  - Constipation [Recovered/Resolved]
  - Varicella [Recovered/Resolved]
  - General physical health deterioration [Recovered/Resolved]
  - Pain in extremity [Recovered/Resolved]
  - Headache [Recovered/Resolved]
  - Body temperature increased [Recovered/Resolved]
  - Listless [Recovered/Resolved]
  - Post herpetic neuralgia [Recovered/Resolved]
  - Cough [Not Recovered/Not Resolved]
  - Haemoptysis [Recovered/Resolved]
  - Skin mass [Recovered/Resolved]
  - Pulmonary contusion [Recovered/Resolved]
  - Fall [Unknown]
  - Pain in extremity [Recovered/Resolved]
  - Listless [Recovered/Resolved]
  - Dizziness [Recovered/Resolved]
  - Hypertension [Recovered/Resolved]
  - Heart rate increased [Recovered/Resolved]
  - SARS-CoV-2 antibody test negative [Not Recovered/Not Resolved]
  - Night sweats [Recovered/Resolved]
  - Migraine [Unknown]

NARRATIVE: CASE EVENT DATE: 20180727
